FAERS Safety Report 6362280-5 (Version None)
Quarter: 2009Q3

REPORT INFORMATION
  Report Type: 
  Country: None (occurrence: None)
  Receive Date: 20090918
  Receipt Date: 20090726
  Transmission Date: 20100115
  Serious: No
  Sender: FDA-Public Use
  Company Number: US-ABBOTT-09P-163-0587660-00

PATIENT
  Sex: Female
  Weight: 61.744 kg

DRUGS (2)
  1. HUMIRA [Suspect]
     Indication: OSTEOARTHRITIS
     Dosage: DAY 1
     Dates: start: 20090716
  2. HUMIRA [Suspect]
     Indication: PSORIATIC ARTHROPATHY

REACTIONS (3)
  - COUGH [None]
  - OROPHARYNGEAL PAIN [None]
  - RASH PAPULAR [None]
